FAERS Safety Report 9835825 (Version 1)
Quarter: 2014Q1

REPORT INFORMATION
  Report Type: Spontaneous
  Country: GR (occurrence: GR)
  Receive Date: 20140122
  Receipt Date: 20140122
  Transmission Date: 20141002
  Serious: Yes (Other)
  Sender: FDA-Public Use
  Company Number: PHHY2014GR006037

PATIENT
  Age: 63 Year
  Sex: Male

DRUGS (3)
  1. COPALIA HCT [Suspect]
     Indication: HYPERTENSION
     Dosage: 0.5 DF, A DAY
  2. COPALIA HCT [Suspect]
     Dosage: UNK UKN, UNK
  3. EYE DROPS//NAPHAZOLINE HYDROCHLORIDE [Concomitant]
     Dosage: UNK UKN, UNK

REACTIONS (4)
  - Intraocular pressure increased [Unknown]
  - Vision blurred [Unknown]
  - Eye disorder [Unknown]
  - Implant site reaction [Unknown]
